FAERS Safety Report 15409580 (Version 1)
Quarter: 2018Q3

REPORT INFORMATION
  Report Type: Report from Study
  Country: US (occurrence: US)
  Receive Date: 20180920
  Receipt Date: 20180920
  Transmission Date: 20181010
  Serious: Yes (Death, Hospitalization)
  Sender: FDA-Public Use
  Company Number: US-ACTELION-A-US2018-175833

PATIENT
  Age: 57 Year
  Sex: Male

DRUGS (7)
  1. ASPIRIN. [Concomitant]
     Active Substance: ASPIRIN
  2. RAMIPRIL. [Concomitant]
     Active Substance: RAMIPRIL
  3. AMLODIPINE [Concomitant]
     Active Substance: AMLODIPINE BESYLATE
  4. SILDENAFIL. [Concomitant]
     Active Substance: SILDENAFIL
  5. AQUANIL CLEANSING [Concomitant]
  6. OPSUMIT [Suspect]
     Active Substance: MACITENTAN
     Indication: PULMONARY HYPERTENSION
     Dosage: 10 MG, QD
     Route: 048
  7. METOPROLOL. [Concomitant]
     Active Substance: METOPROLOL

REACTIONS (4)
  - Death [Fatal]
  - Pulmonary hypertension [Unknown]
  - Disease progression [Unknown]
  - Dyspnoea [Unknown]

NARRATIVE: CASE EVENT DATE: 201806
